FAERS Safety Report 14221763 (Version 1)
Quarter: 2017Q4

REPORT INFORMATION
  Report Type: Spontaneous
  Country: FR (occurrence: FR)
  Receive Date: 20171123
  Receipt Date: 20171123
  Transmission Date: 20180321
  Serious: Yes (Other)
  Sender: FDA-Public Use
  Company Number: FR-MERCK KGAA-2034986

PATIENT
  Age: 79 Year
  Sex: Female

DRUGS (1)
  1. NOVOTHYROX [Suspect]
     Active Substance: LEVOTHYROXINE SODIUM
     Indication: THYROIDECTOMY

REACTIONS (17)
  - Sensory disturbance [None]
  - Nausea [None]
  - Nervousness [None]
  - Headache [None]
  - Fatigue [None]
  - Arthralgia [None]
  - Pruritus [None]
  - Paralysis [None]
  - Insomnia [None]
  - Lacrimation increased [None]
  - Hyperhidrosis [None]
  - Vertigo [None]
  - Tremor [None]
  - Oedema [None]
  - Alopecia [None]
  - Eye oedema [None]
  - Muscle spasms [None]

NARRATIVE: CASE EVENT DATE: 2017
